FAERS Safety Report 8138079-6 (Version None)
Quarter: 2012Q1

REPORT INFORMATION
  Report Type: 
  Country: None (occurrence: None)
  Receive Date: 20120213
  Receipt Date: 20120201
  Transmission Date: 20120608
  Serious: Yes (Other)
  Sender: FDA-Public Use
  Company Number: US-007638

PATIENT
  Age: 35 Year
  Sex: Female
  Weight: 81.6475 kg

DRUGS (2)
  1. TRANEXAMIC ACID [Suspect]
     Indication: MENORRHAGIA
     Dosage: (1300 MG TID ORAL)
     Route: 048
     Dates: start: 20110301, end: 20110928
  2. GAMMAGARD (01/??/2011 TO CONTINUING) [Concomitant]

REACTIONS (4)
  - THROMBOSIS [None]
  - PAIN IN EXTREMITY [None]
  - CATHETER SITE PAIN [None]
  - FEELING HOT [None]
